FAERS Safety Report 6298970-2 (Version None)
Quarter: 2009Q3

REPORT INFORMATION
  Report Type: 
  Country: None (occurrence: None)
  Receive Date: 20090806
  Receipt Date: 20090727
  Transmission Date: 20100115
  Serious: Yes (Other)
  Sender: FDA-Public Use
  Company Number: AT-WYE-H10423309

PATIENT
  Age: 79 Year
  Sex: Female

DRUGS (3)
  1. PANTOPRAZOLE SODIUM [Suspect]
     Route: 048
  2. BISOPROLOL [Suspect]
     Dosage: 5 MG, FREQUENCY UNKNOWN
  3. THIAMAZOLE [Suspect]

REACTIONS (2)
  - GAIT DISTURBANCE [None]
  - POLYNEUROPATHY [None]
